FAERS Safety Report 6211386-X (Version None)
Quarter: 2009Q2

REPORT INFORMATION
  Report Type: 
  Country: None (occurrence: None)
  Receive Date: 20090522
  Receipt Date: 20090212
  Transmission Date: 20091009
  Serious: No
  Sender: FDA-Public Use
  Company Number: 8039408

PATIENT
  Age: 25 Year
  Sex: Male
  Weight: 117.9 kg

DRUGS (1)
  1. CIMZIA [Suspect]
     Indication: CROHN'S DISEASE
     Dosage: 400 MG /M SC
     Route: 058
     Dates: start: 20080905

REACTIONS (3)
  - DIARRHOEA [None]
  - DRUG EFFECT DECREASED [None]
  - NASOPHARYNGITIS [None]
